FAERS Safety Report 16826826 (Version 1)
Quarter: 2019Q3

REPORT INFORMATION
  Report Type: Spontaneous
  Country: US (occurrence: US)
  Receive Date: 20190919
  Receipt Date: 20190919
  Transmission Date: 20191005
  Serious: Yes (Death, Life-Threatening, Hospitalization)
  Sender: FDA-Public Use
  Company Number: US-STRIDES ARCOLAB LIMITED-2019SP008487

PATIENT
  Age: 70 Year
  Sex: Male

DRUGS (5)
  1. METHOTREXATE. [Suspect]
     Active Substance: METHOTREXATE
     Indication: IMMUNE-MEDIATED NECROTISING MYOPATHY
     Dosage: UNK, ONCE A WEEK
     Route: 065
  2. PREDNISOLONE. [Suspect]
     Active Substance: PREDNISOLONE
     Indication: IMMUNE-MEDIATED NECROTISING MYOPATHY
     Dosage: UNK, BID
     Route: 065
  3. PREDNISOLONE. [Suspect]
     Active Substance: PREDNISOLONE
     Dosage: 20 MG, BID
     Route: 065
  4. ALBENDAZOLE. [Suspect]
     Active Substance: ALBENDAZOLE
     Indication: STRONGYLOIDIASIS
     Dosage: 400 MG, UNK
     Route: 065
  5. METHOTREXATE. [Suspect]
     Active Substance: METHOTREXATE
     Dosage: 7.5 MG, ONCE A WEEK
     Route: 048

REACTIONS (19)
  - Cardio-respiratory arrest [Unknown]
  - Respiratory failure [Unknown]
  - Hypoxia [Unknown]
  - Oral candidiasis [Unknown]
  - Acute respiratory distress syndrome [Fatal]
  - Eosinophilia [Unknown]
  - Pyrexia [Unknown]
  - Cough [Unknown]
  - Diarrhoea [Unknown]
  - Apraxia [Unknown]
  - Lung infiltration [Unknown]
  - General physical health deterioration [Unknown]
  - Klebsiella infection [Unknown]
  - Lethargy [Unknown]
  - Tachycardia [Unknown]
  - Off label use [Unknown]
  - Leukopenia [Unknown]
  - Strongyloidiasis [Unknown]
  - Tachypnoea [Unknown]
